FAERS Safety Report 5427885-4 (Version None)
Quarter: 2007Q3

REPORT INFORMATION
  Report Type: 
  Country: None (occurrence: None)
  Receive Date: 20070731
  Receipt Date: 20070522
  Transmission Date: 20080115
  Serious: No
  Sender: FDA-Public Use
  Company Number: US200705005858

PATIENT
  Sex: Female
  Weight: 140.6 kg

DRUGS (2)
  1. BYETTA [Suspect]
     Indication: WEIGHT DECREASED
     Dosage: 5 UG, 2/D, SUBCUTANEOUS
     Route: 058
     Dates: start: 20070513
  2. HUMAN (INSULIN) [Concomitant]

REACTIONS (8)
  - ABDOMINAL PAIN UPPER [None]
  - BLOOD GLUCOSE DECREASED [None]
  - DECREASED APPETITE [None]
  - GASTRIC HYPERTONIA [None]
  - HYPERHIDROSIS [None]
  - PRESYNCOPE [None]
  - TREMOR [None]
  - WEIGHT DECREASED [None]
